FAERS Safety Report 6428752-X (Version None)
Quarter: 2009Q4

REPORT INFORMATION
  Report Type: 
  Country: None (occurrence: None)
  Receive Date: 20091105
  Receipt Date: 20091028
  Transmission Date: 20100525
  Serious: Yes (Hospitalization)
  Sender: FDA-Public Use
  Company Number: US-AVENTIS-200922173GDDC

PATIENT
  Age: 69 Year
  Sex: Male
  Weight: 75.45 kg

DRUGS (2)
  1. TAXOTERE [Suspect]
     Route: 042
     Dates: start: 20090506, end: 20090930
  2. CODE UNBROKEN [Suspect]
     Route: 048
     Dates: start: 20090506, end: 20091025

REACTIONS (7)
  - DECREASED APPETITE [None]
  - DEHYDRATION [None]
  - DRY MOUTH [None]
  - DYSGEUSIA [None]
  - FATIGUE [None]
  - HYPOKALAEMIA [None]
  - WEIGHT DECREASED [None]
